FAERS Safety Report 19153578 (Version 1)
Quarter: 2021Q2

REPORT INFORMATION
  Report Type: Spontaneous
  Country: US (occurrence: US)
  Receive Date: 20210417
  Receipt Date: 20210417
  Transmission Date: 20210717
  Serious: Yes (Hospitalization)
  Sender: FDA-Public Use
  Company Number: None

PATIENT
  Sex: Female

DRUGS (10)
  1. ORENCIA [Suspect]
     Active Substance: ABATACEPT
     Indication: PRODUCT USED FOR UNKNOWN INDICATION
     Route: 058
     Dates: start: 20200601
  2. LEVOTHYROXIN [Concomitant]
     Active Substance: LEVOTHYROXINE
  3. POT CHLORIDE [Concomitant]
     Active Substance: POTASSIUM CHLORIDE
  4. OMEPRAZOLE. [Concomitant]
     Active Substance: OMEPRAZOLE
  5. DULOXETINE. [Concomitant]
     Active Substance: DULOXETINE
  6. GABAPENTIN. [Concomitant]
     Active Substance: GABAPENTIN
  7. FENOFIBRATE. [Concomitant]
     Active Substance: FENOFIBRATE
  8. FUROSEMIDE. [Concomitant]
     Active Substance: FUROSEMIDE
  9. FAMOTIDINE. [Concomitant]
     Active Substance: FAMOTIDINE
  10. FOLIC ACID. [Concomitant]
     Active Substance: FOLIC ACID

REACTIONS (1)
  - Spinal operation [None]
